FAERS Safety Report 9727510 (Version 2)
Quarter: 2013Q4

REPORT INFORMATION
  Report Type: Spontaneous
  Country: US (occurrence: US)
  Receive Date: 20131203
  Receipt Date: 20131203
  Transmission Date: 20140711
  Serious: Yes (Life-Threatening, Hospitalization, Disabling, Other)
  Sender: FDA-Public Use
  Company Number: US-GILEAD-2008-0017129

PATIENT
  Age: 26 Year
  Sex: Male

DRUGS (9)
  1. VIREAD [Suspect]
     Indication: HIV INFECTION
     Route: 048
     Dates: start: 20040902
  2. COMBIVIR [Concomitant]
     Indication: HIV INFECTION
  3. REYATAZ [Concomitant]
     Indication: HIV INFECTION
  4. NORVIR [Concomitant]
     Indication: HIV INFECTION
  5. BACTRIM DS [Concomitant]
     Indication: ANTIFUNGAL PROPHYLAXIS
  6. ZITHROMAX [Concomitant]
     Indication: OPPORTUNISTIC INFECTION PROPHYLAXIS
  7. HYDROCHLOROTHIAZIDE [Concomitant]
     Indication: HYPERTENSION
  8. ZOLOFT [Concomitant]
     Indication: DEPRESSION
  9. PROMETHAZINE [Concomitant]
     Indication: NAUSEA

REACTIONS (1)
  - Renal failure [Recovered/Resolved with Sequelae]
